FAERS Safety Report 7578821-6 (Version None)
Quarter: 2011Q2

REPORT INFORMATION
  Report Type: 
  Country: None (occurrence: None)
  Receive Date: 20110628
  Receipt Date: 20100815
  Transmission Date: 20111010
  Serious: Yes (Death, Other)
  Sender: FDA-Public Use
  Company Number: IL-ROCHE-774497

PATIENT
  Age: 50 Year
  Sex: Female
  Weight: 57 kg

DRUGS (10)
  1. AVASTIN [Suspect]
     Route: 065
     Dates: start: 20080507, end: 20080925
  2. FLUOROURACIL [Suspect]
     Route: 065
     Dates: start: 20090226, end: 20090806
  3. LEUCOVORIN CALCIUM [Suspect]
     Route: 065
     Dates: start: 20080507, end: 20080925
  4. ERBITUX [Suspect]
     Route: 065
     Dates: start: 20090923, end: 20091022
  5. IRINOTECAN HYDROCHLORIDE [Concomitant]
     Dates: start: 20080422, end: 20080925
  6. AVASTIN [Suspect]
     Route: 065
     Dates: start: 20090226, end: 20090806
  7. LEUCOVORIN CALCIUM [Suspect]
     Route: 065
     Dates: start: 20090226, end: 20090806
  8. MITOMYCIN [Suspect]
     Dosage: REPORTED AS MYTOMICIN
     Route: 065
     Dates: start: 20090923, end: 20091022
  9. OXALIPLATIN [Suspect]
     Route: 065
     Dates: start: 20090226, end: 20090806
  10. FLUOROURACIL [Suspect]
     Route: 065

REACTIONS (7)
  - LEUKOPENIA [None]
  - RASH [None]
  - ASCITES [None]
  - ASTHENIA [None]
  - NEUROPATHY PERIPHERAL [None]
  - DISEASE PROGRESSION [None]
  - PLEURAL EFFUSION [None]
